FAERS Safety Report 12925196 (Version 2)
Quarter: 2017Q1

REPORT INFORMATION
  Report Type: Spontaneous
  Country: US (occurrence: US)
  Receive Date: 20161108
  Receipt Date: 20170209
  Transmission Date: 20170428
  Serious: No
  Sender: FDA-Public Use
  Company Number: US-SA-2016SA142266

PATIENT
  Age: 76 Year
  Sex: Male
  Weight: 69.85 kg

DRUGS (6)
  1. PRALUENT [Suspect]
     Active Substance: ALIROCUMAB
     Indication: BLOOD CHOLESTEROL INCREASED
     Dosage: DOSE:75 MILLIGRAM(S)/MILLILITRE
     Route: 065
     Dates: start: 2016
  2. CIALIS [Concomitant]
     Active Substance: TADALAFIL
  3. PRALUENT [Suspect]
     Active Substance: ALIROCUMAB
     Indication: BLOOD CHOLESTEROL INCREASED
     Dosage: DOSE:75 MILLIGRAM(S)/MILLILITRE
     Route: 065
     Dates: start: 201605, end: 20160925
  4. ALIROCUMAB PREFILLED PEN [Concomitant]
     Active Substance: ALIROCUMAB
     Indication: BLOOD CHOLESTEROL INCREASED
     Route: 065
     Dates: start: 20160615
  5. PRALUENT [Suspect]
     Active Substance: ALIROCUMAB
     Indication: LOW DENSITY LIPOPROTEIN INCREASED
     Dosage: DOSE:75 MILLIGRAM(S)/MILLILITRE
     Route: 065
     Dates: start: 201605, end: 20160925
  6. PRALUENT [Suspect]
     Active Substance: ALIROCUMAB
     Indication: LOW DENSITY LIPOPROTEIN INCREASED
     Dosage: DOSE:75 MILLIGRAM(S)/MILLILITRE
     Route: 065
     Dates: start: 2016

REACTIONS (5)
  - Erectile dysfunction [Not Recovered/Not Resolved]
  - Product use issue [Unknown]
  - Muscle spasms [Recovered/Resolved]
  - Gait disturbance [Recovered/Resolved]
  - Fatigue [Not Recovered/Not Resolved]

NARRATIVE: CASE EVENT DATE: 2016
